FAERS Safety Report 5387230-X (Version None)
Quarter: 2007Q3

REPORT INFORMATION
  Report Type: 
  Country: None (occurrence: None)
  Receive Date: 20070716
  Receipt Date: 20070705
  Transmission Date: 20080115
  Serious: Yes (Hospitalization, Other)
  Sender: FDA-Public Use
  Company Number: JP-JNJFOC-20040807858

PATIENT
  Sex: Female
  Weight: 41 kg

DRUGS (11)
  1. REMICADE [Suspect]
     Indication: RHEUMATOID ARTHRITIS
     Route: 042
  2. RHEUMATREX [Suspect]
  3. RHEUMATREX [Suspect]
  4. RHEUMATREX [Suspect]
     Indication: RHEUMATOID ARTHRITIS
  5. MEDROL [Suspect]
     Indication: DRUG USE FOR UNKNOWN INDICATION
     Dosage: 1.5T
  6. LOXONINE [Concomitant]
     Dosage: 3T
  7. LEUCOVORIN CALCIUM [Concomitant]
     Dosage: 1T
  8. PREDNISOLONE [Concomitant]
     Route: 048
  9. AMARYL [Concomitant]
     Route: 048
  10. GASTER [Concomitant]
     Route: 048
  11. DEPAS [Concomitant]
     Route: 048

REACTIONS (3)
  - PNEUMOCYSTIS JIROVECI PNEUMONIA [None]
  - PNEUMONIA FUNGAL [None]
  - RENAL CELL CARCINOMA STAGE UNSPECIFIED [None]
